FAERS Safety Report 5686788-0 (Version None)
Quarter: 2008Q1

REPORT INFORMATION
  Report Type: 
  Country: None (occurrence: None)
  Receive Date: 20080328
  Receipt Date: 20070530
  Transmission Date: 20080703
  Serious: No
  Sender: FDA-Public Use
  Company Number: US-BAYER-US-2007-020007

PATIENT
  Age: 37 Year
  Sex: Female
  Weight: 49 kg

DRUGS (1)
  1. MIRENA [Suspect]
     Route: 015
     Dates: start: 20070122

REACTIONS (7)
  - ABDOMINAL PAIN [None]
  - AMENORRHOEA [None]
  - BREAST TENDERNESS [None]
  - CHILLS [None]
  - COMPLICATION OF DEVICE INSERTION [None]
  - METRORRHAGIA [None]
  - PROCEDURAL PAIN [None]
